FAERS Safety Report 8926218 (Version 1)
Quarter: 2012Q4

REPORT INFORMATION
  Report Type: 
  Country: SE (occurrence: SE)
  Receive Date: 20121126
  Receipt Date: 20121126
  Transmission Date: 20130627
  Serious: Yes (Other)
  Sender: FDA-Public Use
  Company Number: SE-BAYER-2012-120415

PATIENT

DRUGS (1)
  1. MIRENA [Suspect]
     Dosage: UNK
     Route: 063
     Dates: start: 20121003, end: 20121108

REACTIONS (1)
  - Choking [Recovered/Resolved]
